FAERS Safety Report 6086515-1 (Version None)
Quarter: 2009Q1

REPORT INFORMATION
  Report Type: 
  Country: None (occurrence: None)
  Receive Date: 20090223
  Receipt Date: 20090213
  Transmission Date: 20090719
  Serious: Yes (Other)
  Sender: FDA-Public Use
  Company Number: US-JNJFOC-20090204086

PATIENT
  Sex: Female
  Weight: 112.95 kg

DRUGS (1)
  1. TOPAMAX [Suspect]
     Indication: BIPOLAR DISORDER
     Dosage: 200 MG IN THE AM AND 300 MG IN THE PM
     Route: 048

REACTIONS (2)
  - ABORTION SPONTANEOUS [None]
  - DRUG EXPOSURE DURING PREGNANCY [None]
